FAERS Safety Report 4491461-0 (Version None)
Quarter: 2004Q3

REPORT INFORMATION
  Report Type: 
  Country: None (occurrence: None)
  Receive Date: 20040921
  Receipt Date: 20030721
  Transmission Date: 20050211
  Serious: Yes (Hospitalization)
  Sender: FDA-Public Use
  Company Number: 163-20785-03070540

PATIENT
  Age: 64 Year
  Sex: Male
  Weight: 75.9 kg

DRUGS (3)
  1. THALOMID [Suspect]
     Indication: METASTASES TO CENTRAL NERVOUS SYSTEM
     Dosage: 200 MG, DAILY, ORAL
     Route: 048
     Dates: start: 20030605, end: 20030609
  2. DECADRON [Concomitant]
  3. INSULIN [Concomitant]

REACTIONS (8)
  - ABASIA [None]
  - ASTHENIA [None]
  - BLOOD PRESSURE DECREASED [None]
  - CONFUSIONAL STATE [None]
  - FALL [None]
  - HYPERGLYCAEMIA [None]
  - INJURY [None]
  - MENTAL STATUS CHANGES [None]
